FAERS Safety Report 7125622-9 (Version None)
Quarter: 2010Q4

REPORT INFORMATION
  Report Type: 
  Country: None (occurrence: None)
  Receive Date: 20101129
  Receipt Date: 20101112
  Transmission Date: 20110411
  Serious: Yes (Hospitalization)
  Sender: FDA-Public Use
  Company Number: DE-AMGEN-DEUNI2010003317

PATIENT

DRUGS (10)
  1. DARBEPOETIN ALFA [Suspect]
     Indication: RENAL FAILURE CHRONIC
     Dosage: UNK UNK, QWK
     Route: 042
     Dates: start: 20090827
  2. BUDENOFALK [Concomitant]
     Dosage: 3 MG, UNK
     Dates: start: 20090925
  3. NIFIDINE [Concomitant]
     Dosage: 10 MG, UNK
     Dates: start: 20091016, end: 20100330
  4. COLIFOAM [Concomitant]
     Dosage: UNK UNK, BID
  5. CORTISON [Concomitant]
     Dosage: UNK
     Dates: start: 20020720
  6. MAGNESIUM VERLA                    /00648601/ [Concomitant]
  7. ROCALTROL [Concomitant]
  8. CALCIUM [Concomitant]
     Dosage: 500 MG, UNK
  9. GENOTROPIN [Concomitant]
     Dosage: 2 MG, UNK
     Dates: start: 20090701
  10. LEVOTHYROXINE SODIUM [Concomitant]
     Dosage: UNK
     Dates: start: 20091009

REACTIONS (1)
  - HLA MARKER STUDY [None]
